FAERS Safety Report 6013343-5 (Version None)
Quarter: 2008Q4

REPORT INFORMATION
  Report Type: 
  Country: None (occurrence: None)
  Receive Date: 20081219
  Receipt Date: 20081212
  Transmission Date: 20090506
  Serious: Yes (Hospitalization)
  Sender: FDA-Public Use
  Company Number: IN-NOVOPROD-281414

PATIENT
  Age: 64 Year
  Sex: Male
  Weight: 81 kg

DRUGS (3)
  1. MIXTARD HUMAN 70/30 [Suspect]
     Indication: TYPE 2 DIABETES MELLITUS
     Route: 058
  2. WOSULIN R [Concomitant]
     Dosage: 50 IU, UNK
  3. HUMALOG [Concomitant]
     Dosage: 40 IU, UNK

REACTIONS (2)
  - HYPERSENSITIVITY [None]
  - SKIN INFECTION [None]
